FAERS Safety Report 7290147-7 (Version None)
Quarter: 2011Q1

REPORT INFORMATION
  Report Type: 
  Country: None (occurrence: None)
  Receive Date: 20110214
  Receipt Date: 20110202
  Transmission Date: 20110831
  Serious: Yes (Hospitalization)
  Sender: FDA-Public Use
  Company Number: FR-SANOFI-AVENTIS-2011SA007193

PATIENT
  Sex: Female

DRUGS (1)
  1. STILNOX [Suspect]
     Dosage: UNTIL 3 BLISTER PACKS DAILY
     Route: 048

REACTIONS (5)
  - DEPRESSION [None]
  - DRUG ABUSE [None]
  - OVERDOSE [None]
  - INTENTIONAL SELF-INJURY [None]
  - SUICIDE ATTEMPT [None]
